FAERS Safety Report 6809694-4 (Version None)
Quarter: 2010Q2

REPORT INFORMATION
  Report Type: 
  Country: None (occurrence: None)
  Receive Date: 20100630
  Receipt Date: 20100625
  Transmission Date: 20101027
  Serious: Yes (Life-Threatening)
  Sender: FDA-Public Use
  Company Number: CY-SANOFI-AVENTIS-2010SA037114

PATIENT
  Sex: Male

DRUGS (2)
  1. LANTUS [Suspect]
     Route: 058
  2. GLUCOPHAGE [Concomitant]

REACTIONS (1)
  - BLADDER CANCER [None]
